FAERS Safety Report 23546381 (Version 1)
Quarter: 2024Q1

REPORT INFORMATION
  Report Type: Report from Study
  Country: US (occurrence: US)
  Receive Date: 20240220
  Receipt Date: 20240220
  Transmission Date: 20240410
  Serious: Yes (Other)
  Sender: FDA-Public Use
  Company Number: US-ACADIA PHARMACEUTICALS INC.-ACA-2024-PIM-000445

PATIENT
  Sex: Female

DRUGS (12)
  1. NUPLAZID [Suspect]
     Active Substance: PIMAVANSERIN TARTRATE
     Indication: Parkinson^s disease psychosis
     Dosage: 34 MILLIGRAM, QD
     Route: 048
  2. AMLODIPINE [Concomitant]
     Active Substance: AMLODIPINE BESYLATE
  3. ATORVASTATIN [Concomitant]
     Active Substance: ATORVASTATIN
  4. BAYER ASPIRIN [Concomitant]
     Active Substance: ASPIRIN
  5. FEBUXOSTAT [Concomitant]
     Active Substance: FEBUXOSTAT
  6. LEVETIRACETAM [Concomitant]
     Active Substance: LEVETIRACETAM
  7. PANTOPRAZOLE [Concomitant]
     Active Substance: PANTOPRAZOLE
  8. PREGABALIN [Concomitant]
     Active Substance: PREGABALIN
  9. XARELTO [Concomitant]
     Active Substance: RIVAROXABAN
  10. COLCHICINE [Concomitant]
     Active Substance: COLCHICINE
  11. BRIMONIDINE [Concomitant]
     Active Substance: BRIMONIDINE TARTRATE
  12. DORZOLAMIDE [Concomitant]
     Active Substance: DORZOLAMIDE

REACTIONS (2)
  - Glaucoma [Not Recovered/Not Resolved]
  - Ill-defined disorder [Not Recovered/Not Resolved]
